FAERS Safety Report 9392704 (Version 3)
Quarter: 2013Q3

REPORT INFORMATION
  Report Type: Spontaneous
  Country: CN (occurrence: CN)
  Receive Date: 20130710
  Receipt Date: 20130719
  Transmission Date: 20140515
  Serious: Yes (Other)
  Sender: FDA-Public Use
  Company Number: CN-ROCHE-1246674

PATIENT
  Age: 79 Year
  Sex: Male

DRUGS (2)
  1. XELODA [Suspect]
     Indication: COLORECTAL CANCER STAGE III
     Route: 048
  2. OXALIPLATIN [Concomitant]
     Indication: COLORECTAL CANCER
     Route: 065

REACTIONS (3)
  - Gastrointestinal inflammation [Recovering/Resolving]
  - Gastrointestinal haemorrhage [Recovering/Resolving]
  - Bone marrow failure [Recovering/Resolving]
